FAERS Safety Report 8837188 (Version 1)
Quarter: 2012Q4

REPORT INFORMATION
  Report Type: 
  Country: JP (occurrence: JP)
  Receive Date: 20121012
  Receipt Date: 20121012
  Transmission Date: 20130627
  Serious: Yes (Death)
  Sender: FDA-Public Use
  Company Number: JP-EISAI INC-E2020-11472-SPO-JP

PATIENT
  Age: 82 Year
  Sex: Female

DRUGS (3)
  1. ARICEPT [Suspect]
     Indication: DRUG USE FOR UNKNOWN INDICATION
     Dosage: unknown
     Route: 048
  2. AMLODIPINE BESILATE [Concomitant]
     Dosage: unknown
     Route: 048
  3. LIDOCAINE HYDROCHLORIDE [Concomitant]
     Dosage: unknown

REACTIONS (1)
  - Drug level increased [Fatal]
